FAERS Safety Report 14004634 (Version 1)
Quarter: 2017Q3

REPORT INFORMATION
  Report Type: Spontaneous
  Country: FR (occurrence: FR)
  Receive Date: 20170922
  Receipt Date: 20170922
  Transmission Date: 20171128
  Serious: Yes (Hospitalization, Other)
  Sender: FDA-Public Use
  Company Number: FR-ASTELLAS-2017US037775

PATIENT
  Age: 68 Year
  Sex: Male

DRUGS (2)
  1. VESICARE [Suspect]
     Active Substance: SOLIFENACIN SUCCINATE
     Indication: PRODUCT USED FOR UNKNOWN INDICATION
     Route: 048
  2. LEVOTHYROX [Concomitant]
     Active Substance: LEVOTHYROXINE
     Indication: PRODUCT USED FOR UNKNOWN INDICATION
     Dosage: UNK UNK, UNKNOWN FREQ.
     Route: 065

REACTIONS (11)
  - Peripheral arterial occlusive disease [Unknown]
  - Nausea [Recovered/Resolved]
  - Medication error [Unknown]
  - Foreign body in respiratory tract [Recovered/Resolved]
  - Oesophagitis [Unknown]
  - Burn oesophageal [Unknown]
  - Vomiting [Recovered/Resolved]
  - Gastrooesophageal reflux disease [Recovered/Resolved]
  - Oesophageal carcinoma [Unknown]
  - Dysphagia [Unknown]
  - Oesophageal irritation [Recovering/Resolving]

NARRATIVE: CASE EVENT DATE: 201709
